FAERS Safety Report 24104664 (Version 1)
Quarter: 2024Q3

REPORT INFORMATION
  Report Type: Spontaneous
  Country: CN (occurrence: CN)
  Receive Date: 20240717
  Receipt Date: 20240717
  Transmission Date: 20241017
  Serious: Yes (Life-Threatening)
  Sender: BAYER
  Company Number: CN-BAYER-2024A102012

PATIENT
  Age: 61 Year
  Sex: Male
  Weight: 67 kg

DRUGS (1)
  1. ULTRAVIST [Suspect]
     Active Substance: IOPROMIDE
     Indication: Computerised tomogram
     Dosage: 80 ML, ONCE, DISSOLVED IN 30ML NORMAL SALINE, SPEED AT 3ML/S
     Route: 042
     Dates: start: 20240709, end: 20240709

REACTIONS (6)
  - Contrast media allergy [Recovering/Resolving]
  - Blood pressure decreased [None]
  - Urinary incontinence [None]
  - Dizziness [Recovering/Resolving]
  - Balance disorder [None]
  - Fall [None]

NARRATIVE: CASE EVENT DATE: 20240709
